FAERS Safety Report 6161552-7 (Version None)
Quarter: 2009Q2

REPORT INFORMATION
  Report Type: 
  Country: None (occurrence: None)
  Receive Date: 20090417
  Receipt Date: 20090417
  Transmission Date: 20091009
  Serious: Yes (Other)
  Sender: FDA-Public Use
  Company Number: None

PATIENT
  Age: 53 Year
  Sex: Female
  Weight: 60.3284 kg

DRUGS (2)
  1. PANTOPRAZOLE SODIUM [Suspect]
     Indication: GASTROOESOPHAGEAL REFLUX DISEASE
     Dosage: 40 MGM DAILY PO
     Route: 048
     Dates: start: 20090410, end: 20090414
  2. PAROXETINE HCL [Suspect]

REACTIONS (10)
  - CHILLS [None]
  - CONSTIPATION [None]
  - DRUG DISPENSING ERROR [None]
  - DRY MOUTH [None]
  - FEELING ABNORMAL [None]
  - NAUSEA [None]
  - PRODUCT LABEL ISSUE [None]
  - PRODUCT LABEL ON WRONG PRODUCT [None]
  - RASH [None]
  - SWELLING FACE [None]
